FAERS Safety Report 17385617 (Version 1)
Quarter: 2020Q1

REPORT INFORMATION
  Report Type: Spontaneous
  Country: US (occurrence: US)
  Receive Date: 20200206
  Receipt Date: 20200206
  Transmission Date: 20200409
  Serious: No
  Sender: FDA-Public Use
  Company Number: US-ABBVIE-19K-163-3216199-00

PATIENT
  Age: 66 Year
  Sex: Male
  Weight: 111.23 kg

DRUGS (8)
  1. ELAPRASE  (NON-ABBVIE) [Concomitant]
     Indication: ANTICOAGULANT THERAPY
  2. EXCON (NON-ABBVIE) [Concomitant]
     Indication: BLOOD TESTOSTERONE DECREASED
  3. PREDNISONE (NON-ABBVIE) [Concomitant]
     Indication: ARTHRITIS
  4. METHOTREXATE (NON-ABBVIE) [Concomitant]
     Indication: ARTHRITIS
  5. ZOLOFT  (NON-ABBVIE) [Concomitant]
     Indication: DEPRESSION
  6. HUMIRA [Suspect]
     Active Substance: ADALIMUMAB
     Indication: PSORIATIC ARTHROPATHY
     Route: 058
     Dates: start: 201908
  7. FOLIC ACID (NON-ABBVIE) [Concomitant]
     Indication: ARTHRITIS
  8. CLOBETASOL (NON-ABBVIE) [Concomitant]
     Indication: PRODUCT USED FOR UNKNOWN INDICATION

REACTIONS (4)
  - Injection site nodule [Recovered/Resolved]
  - Device issue [Unknown]
  - Injection site pruritus [Recovered/Resolved]
  - Wrong technique in product usage process [Unknown]

NARRATIVE: CASE EVENT DATE: 20191228
